FAERS Safety Report 8314984-2 (Version None)
Quarter: 2012Q2

REPORT INFORMATION
  Report Type: 
  Country: None (occurrence: None)
  Receive Date: 20120426
  Receipt Date: 20120124
  Transmission Date: 20120825
  Serious: No
  Sender: FDA-Public Use
  Company Number: US-MUTUAL PHARMACEUTICAL COMPANY, INC.-CLCY20120015

PATIENT
  Sex: Female
  Weight: 78.542 kg

DRUGS (5)
  1. UNSPECIFIED MEDICATION FOR HIGH BLOOD PRESSURE [Concomitant]
     Indication: HYPERTENSION
     Route: 065
  2. UNSPECIFIED MEDICATION FOR DIABETES [Concomitant]
     Indication: DIABETES MELLITUS
     Route: 065
  3. COLCRYS [Suspect]
     Indication: GOUT
     Route: 048
     Dates: start: 20090101, end: 20110801
  4. UNSPECIFIED MEDICATION FOR ULCER [Concomitant]
     Indication: ULCER
     Route: 065
  5. UNSPECIFIED MEDICATION FOR HIGH CHOLESTEROL [Concomitant]
     Indication: BLOOD CHOLESTEROL INCREASED
     Route: 065

REACTIONS (2)
  - MUSCULAR WEAKNESS [None]
  - RENAL FUNCTION TEST ABNORMAL [None]
